FAERS Safety Report 7265614-2 (Version None)
Quarter: 2011Q1

REPORT INFORMATION
  Report Type: 
  Country: None (occurrence: None)
  Receive Date: 20110131
  Receipt Date: 20110126
  Transmission Date: 20110831
  Serious: Yes (Other)
  Sender: FDA-Public Use
  Company Number: BR-BAYER-201014735LA

PATIENT
  Sex: Female
  Weight: 78 kg

DRUGS (6)
  1. YAZ [Suspect]
     Indication: CONTRACEPTION
     Dosage: SHOULD HAVE STARTED ON 05-APR-2010, BUT TOOK A PILL TWO DAYS AFTER
     Route: 048
     Dates: start: 20070101, end: 20100401
  2. UTROGESTAN [Concomitant]
     Indication: PRODUCT USED FOR UNKNOWN INDICATION
     Route: 067
  3. PHENERGAN [Concomitant]
     Indication: HYPERSENSITIVITY
     Dosage: 3 INJECTIONS
     Route: 030
     Dates: start: 20100401, end: 20100401
  4. PURAN T4 [Concomitant]
     Indication: PRODUCT USED FOR UNKNOWN INDICATION
     Route: 048
  5. SIMVASTATIN [Concomitant]
     Indication: PRODUCT USED FOR UNKNOWN INDICATION
     Route: 048
  6. ANTIBIOTIC NOS [Concomitant]
     Indication: PRODUCT USED FOR UNKNOWN INDICATION
     Route: 065
     Dates: start: 20100101

REACTIONS (7)
  - DIARRHOEA [None]
  - PREGNANCY ON ORAL CONTRACEPTIVE [None]
  - ANTEPARTUM HAEMORRHAGE [None]
  - POLYHYDRAMNIOS [None]
  - HYPERTENSION [None]
  - PREMATURE LABOUR [None]
  - WEIGHT INCREASED [None]
